FAERS Safety Report 5670912-X (Version None)
Quarter: 2008Q1

REPORT INFORMATION
  Report Type: 
  Country: None (occurrence: None)
  Receive Date: 20080318
  Receipt Date: 20080311
  Transmission Date: 20080703
  Serious: Yes (Death, Hospitalization)
  Sender: FDA-Public Use
  Company Number: B0507629A

PATIENT
  Age: 86 Year
  Sex: Male
  Weight: 35 kg

DRUGS (8)
  1. VALTREX [Suspect]
     Indication: HERPES ZOSTER
     Dosage: 500MG PER DAY
     Route: 048
     Dates: start: 20080129, end: 20080130
  2. VICCLOX [Suspect]
     Indication: DRUG USE FOR UNKNOWN INDICATION
     Dosage: 250MG PER DAY
     Route: 065
     Dates: start: 20080202, end: 20080205
  3. GASMOTIN [Concomitant]
     Indication: GASTRITIS
     Dosage: 15MG PER DAY
     Route: 048
     Dates: start: 20080201
  4. ALFAROL [Concomitant]
     Indication: HYPOPARATHYROIDISM
     Dosage: .25MCG PER DAY
     Route: 048
     Dates: start: 20080201
  5. BUFFERIN [Concomitant]
     Dosage: 81MG PER DAY
     Route: 048
     Dates: start: 20080201
  6. GLYSENNID [Concomitant]
     Indication: CONSTIPATION
     Dosage: 24MG PER DAY
     Route: 048
     Dates: start: 20080201
  7. CALTAN [Concomitant]
     Indication: HYPOPARATHYROIDISM
     Dosage: 3000MG PER DAY
     Route: 048
     Dates: start: 20080201
  8. TAKEPRON [Concomitant]
     Dosage: 15MG PER DAY
     Route: 048
     Dates: start: 20080201

REACTIONS (12)
  - CONDITION AGGRAVATED [None]
  - CSF CELL COUNT INCREASED [None]
  - DYSLALIA [None]
  - ENCEPHALITIS [None]
  - EXCORIATION [None]
  - HEART RATE DECREASED [None]
  - MALAISE [None]
  - RENAL DISORDER [None]
  - RESTLESSNESS [None]
  - SCAB [None]
  - SKIN LESION [None]
  - TOXIC ENCEPHALOPATHY [None]
